FAERS Safety Report 15954137 (Version 2)
Quarter: 2019Q1

REPORT INFORMATION
  Report Type: Spontaneous
  Country: IL (occurrence: IL)
  Receive Date: 20190213
  Receipt Date: 20190213
  Transmission Date: 20190417
  Serious: Yes (Life-Threatening)
  Sender: FDA-Public Use
  Company Number: IL-TEVA-2019-IL-1010195

PATIENT
  Age: 87 Year
  Sex: Male

DRUGS (15)
  1. AEROVENT SOL 0.25 MG /1ML [Concomitant]
  2. DISOTHIAZIDE TAB 25 MG [Concomitant]
  3. LAXADIN TAB 5 MG [Concomitant]
  4. ASPIRIN TAB 100 MG [Concomitant]
  5. AVODART CAP 0.5 MG [Concomitant]
  6. LORASTINE TAB 10 MG [Concomitant]
  7. FLIXOTIDE NEBULES SUS 0.5 MG/2ML [Concomitant]
     Dosage: 0.5 MG/2 ML
  8. FUSID TABLETS [Suspect]
     Active Substance: FUROSEMIDE
     Indication: CARDIAC FAILURE
     Route: 065
  9. ALLORIL TAB 100 MG [Concomitant]
  10. DOXYLIN TAB 100 MG [Concomitant]
  11. NEOBLOC TAB 100 MG [Concomitant]
  12. ENALADEX TAB 5 MG [Concomitant]
  13. PRAVASTATIN TAB 10 MG [Concomitant]
  14. VENTOLIN RESPIR. SOL 5 MG /1ML [Concomitant]
  15. SOLVEX SOL 2 MG /1ML [Concomitant]

REACTIONS (2)
  - Hypotension [Unknown]
  - Renal failure [Unknown]
